FAERS Safety Report 5568956-1 (Version None)
Quarter: 2007Q4

REPORT INFORMATION
  Report Type: 
  Country: None (occurrence: None)
  Receive Date: 20071220
  Receipt Date: 20070409
  Transmission Date: 20080405
  Serious: No
  Sender: FDA-Public Use
  Company Number: A0646290A

PATIENT
  Age: 23 Year
  Sex: Female

DRUGS (2)
  1. AVODART [Suspect]
     Indication: DRUG USE FOR UNKNOWN INDICATION
     Route: 062
     Dates: start: 20070406, end: 20070406
  2. PRENATAL VITAMINS [Concomitant]

REACTIONS (4)
  - ACCIDENTAL EXPOSURE [None]
  - BLOOD GLUCOSE DECREASED [None]
  - DIZZINESS [None]
  - DRUG EXPOSURE DURING PREGNANCY [None]
